FAERS Safety Report 6816130-0 (Version None)
Quarter: 2010Q3

REPORT INFORMATION
  Report Type: 
  Country: None (occurrence: None)
  Receive Date: 20100702
  Receipt Date: 20100702
  Transmission Date: 20110219
  Serious: Yes (Other)
  Sender: FDA-Public Use
  Company Number: None

PATIENT

DRUGS (2)
  1. PROTEINEX [Suspect]
     Indication: HYPOALBUMINAEMIA
     Dosage: WITH DIALYSIS PO OR GT
     Route: 048
  2. PROTEINEX [Suspect]
     Indication: RENAL FAILURE CHRONIC
     Dosage: WITH DIALYSIS PO OR GT
     Route: 048

REACTIONS (2)
  - BLOOD PHOSPHORUS INCREASED [None]
  - DRUG INEFFECTIVE [None]
